FAERS Safety Report 12152773 (Version 1)
Quarter: 2016Q1

REPORT INFORMATION
  Report Type: Spontaneous
  Country: FR (occurrence: FR)
  Receive Date: 20160304
  Receipt Date: 20160304
  Transmission Date: 20160526
  Serious: Yes (Hospitalization)
  Sender: FDA-Public Use
  Company Number: FR-ASTRAZENECA-2016SE22034

PATIENT
  Age: 32288 Day
  Sex: Male

DRUGS (5)
  1. LASILIX FAIBLE [Suspect]
     Active Substance: FUROSEMIDE
     Indication: CORONARY OSTIAL STENOSIS
     Route: 048
     Dates: start: 20150626, end: 20150822
  2. COVERSYL [Suspect]
     Active Substance: PERINDOPRIL
     Indication: CORONARY OSTIAL STENOSIS
     Route: 048
     Dates: start: 20150626, end: 20150819
  3. SYMBICORT [Suspect]
     Active Substance: BUDESONIDE\FORMOTEROL FUMARATE DIHYDRATE
     Indication: COUGH
     Route: 055
     Dates: start: 20150805, end: 20150819
  4. BISOPROLOL [Concomitant]
     Active Substance: BISOPROLOL
  5. PNEUMOREL [Suspect]
     Active Substance: FENSPIRIDE HYDROCHLORIDE
     Indication: COUGH
     Route: 048
     Dates: start: 20150803, end: 20150819

REACTIONS (7)
  - Mixed liver injury [Recovered/Resolved]
  - Off label use [Recovered/Resolved]
  - Drug reaction with eosinophilia and systemic symptoms [Recovered/Resolved]
  - Product use issue [Unknown]
  - Pyrexia [Recovered/Resolved]
  - Jaundice [Recovered/Resolved]
  - Crystal arthropathy [Unknown]

NARRATIVE: CASE EVENT DATE: 20150805
